FAERS Safety Report 20624772 (Version 1)
Quarter: 2022Q1

REPORT INFORMATION
  Report Type: Spontaneous
  Country: US (occurrence: US)
  Receive Date: 20220323
  Receipt Date: 20220323
  Transmission Date: 20220423
  Serious: No
  Sender: FDA-Public Use
  Company Number: US-drreddys-SPO/USA/22/0147826

PATIENT
  Age: 19 Year
  Sex: Female

DRUGS (2)
  1. ACCUTANE [Suspect]
     Active Substance: ISOTRETINOIN
     Indication: Product used for unknown indication
     Dosage: RMA ISSUE DATE?13 JANUARY 2022 03:47:22 PM, 08 OCTOBER 2021 11:42:33 AM, 08 SEPTEMBER 2021 07:10:48
  2. ACCUTANE [Suspect]
     Active Substance: ISOTRETINOIN
     Dosage: RMA ISSUE DATE?06 DECEMBER 2021 07:33:30 PM, 03 NOVEMBER 2021 02:19:37 PM, 08 OCTOBER 2021 11:42:58

REACTIONS (1)
  - Laboratory test abnormal [Unknown]
